FAERS Safety Report 7583224-4 (Version None)
Quarter: 2011Q2

REPORT INFORMATION
  Report Type: 
  Country: None (occurrence: None)
  Receive Date: 20110623
  Receipt Date: 20110614
  Transmission Date: 20111010
  Serious: Yes (Life-Threatening)
  Sender: FDA-Public Use
  Company Number: LEO-2011-00520

PATIENT
  Age: 54 Year
  Sex: Male

DRUGS (4)
  1. CIPROFLOXACIN [Concomitant]
  2. CLINDAMYCIN (CLIDAMYCIN) [Concomitant]
  3. INNOHEP [Suspect]
     Indication: PULMONARY EMBOLISM
     Dosage: 14000 IU, SUBCUTANEOUS
     Route: 058
  4. ACTIVASE [Suspect]
     Indication: PLEURAL INFECTION
     Dosage: 75 MG (25 MG, 3 IN 1 D), INTRAPLEURAL
     Route: 034

REACTIONS (13)
  - PULMONARY EMBOLISM [None]
  - ATELECTASIS [None]
  - HYPOVOLAEMIA [None]
  - BLOOD PRESSURE DECREASED [None]
  - TACHYCARDIA [None]
  - PLEURAL EFFUSION [None]
  - HEPATOMEGALY [None]
  - PYREXIA [None]
  - DISCOMFORT [None]
  - HAEMOTHORAX [None]
  - PLEURITIC PAIN [None]
  - DEHYDRATION [None]
  - ANXIETY [None]
